FAERS Safety Report 24051900 (Version 1)
Quarter: 2024Q3

REPORT INFORMATION
  Report Type: Spontaneous
  Country: DE (occurrence: DE)
  Receive Date: 20240704
  Receipt Date: 20240704
  Transmission Date: 20241017
  Serious: Yes (Other)
  Sender: TEVA
  Company Number: DE-DCGMA-24203394

PATIENT
  Sex: Female
  Weight: 64 kg

DRUGS (3)
  1. TAMOXIFEN [Suspect]
     Active Substance: TAMOXIFEN
     Indication: Breast cancer
     Route: 048
  2. ELIQUIS [Concomitant]
     Active Substance: APIXABAN
     Indication: Myocardial infarction
     Dosage: DURATION: YEARS
     Route: 048
  3. METFORMIN [Concomitant]
     Active Substance: METFORMIN HYDROCHLORIDE
     Indication: Myocardial infarction
     Dosage: 1-0-1; DURATION: YEARS
     Route: 048

REACTIONS (1)
  - Ophthalmic vein thrombosis [Recovered/Resolved]
